FAERS Safety Report 23237566 (Version 1)
Quarter: 2023Q4

REPORT INFORMATION
  Report Type: Spontaneous
  Country: GB (occurrence: GB)
  Receive Date: 20231128
  Receipt Date: 20231128
  Transmission Date: 20240110
  Serious: Yes (Death, Hospitalization, Other)
  Sender: FDA-Public Use
  Company Number: None

PATIENT
  Age: 61 Year
  Sex: Female

DRUGS (1)
  1. YESCARTA [Suspect]
     Active Substance: AXICABTAGENE CILOLEUCEL
     Indication: Diffuse large B-cell lymphoma
     Dosage: 0.4-2 X 10 ^8 VIABLE T CELLS; ;
     Route: 065
     Dates: start: 20231004

REACTIONS (2)
  - Diffuse large B-cell lymphoma recurrent [Fatal]
  - Cytokine release syndrome [Not Recovered/Not Resolved]
